FAERS Safety Report 8556227 (Version 2)
Quarter: 2013Q1

REPORT INFORMATION
  Report Type: Spontaneous
  Country: FR (occurrence: FR)
  Receive Date: 20120510
  Receipt Date: 20130208
  Transmission Date: 20140127
  Serious: Yes (Hospitalization)
  Sender: FDA-Public Use
  Company Number: FR-GLAXOSMITHKLINE-B0799170A

PATIENT
  Age: 70 Year
  Sex: Female

DRUGS (9)
  1. REVOLADE [Suspect]
     Indication: IDIOPATHIC THROMBOCYTOPENIC PURPURA
     Dosage: 50MG PER DAY
     Route: 048
     Dates: start: 20120413
  2. AVLOCARDYL [Concomitant]
  3. CORTANCYL [Concomitant]
  4. VENLAFAXINE [Concomitant]
  5. ESOMEPRAZOLE [Concomitant]
  6. EFFERALGAN [Concomitant]
  7. DIFFU K [Concomitant]
  8. INSULATARD [Concomitant]
  9. NOVORAPID [Concomitant]

REACTIONS (3)
  - Rash maculo-papular [Recovered/Resolved]
  - Feeling hot [Recovered/Resolved]
  - Pruritus [Recovered/Resolved]
